FAERS Safety Report 9713823 (Version 3)
Quarter: 2013Q4

REPORT INFORMATION
  Report Type: Spontaneous
  Country: US (occurrence: US)
  Receive Date: 20131126
  Receipt Date: 20131210
  Transmission Date: 20140711
  Serious: Yes (Hospitalization)
  Sender: FDA-Public Use
  Company Number: US-GLAXOSMITHKLINE-A0851494A

PATIENT
  Age: 33 Year
  Sex: Female

DRUGS (2)
  1. VALTREX [Suspect]
     Indication: HERPES SIMPLEX
     Dosage: 1G THREE TIMES PER DAY
     Route: 048
  2. PROTONIX [Concomitant]

REACTIONS (6)
  - Investigation [Unknown]
  - Vomiting [Unknown]
  - Malnutrition [Unknown]
  - Oesophagitis [Unknown]
  - Ill-defined disorder [Unknown]
  - Nausea [Unknown]
